FAERS Safety Report 5381139-3 (Version None)
Quarter: 2007Q3

REPORT INFORMATION
  Report Type: 
  Country: None (occurrence: None)
  Receive Date: 20070706
  Receipt Date: 20070625
  Transmission Date: 20080115
  Serious: Yes (Hospitalization, Other)
  Sender: FDA-Public Use
  Company Number: GB-PFIZER INC-2007047964

PATIENT
  Age: 76 Year
  Sex: Female

DRUGS (18)
  1. GABAPENTIN [Suspect]
     Indication: NEURALGIA
     Dates: start: 20070425, end: 20070503
  2. ASPIRIN [Concomitant]
  3. ATENOLOL [Concomitant]
  4. BENDROFLUMETHIAZIDE [Concomitant]
  5. CLONIDINE [Concomitant]
  6. CODEINE PHOSPHATE AND ACETAMINOPHEN [Concomitant]
  7. DIAZEPAM [Concomitant]
  8. DOMPERIDONE [Concomitant]
  9. HALOPERIDOL [Concomitant]
     Dosage: DAILY DOSE:500MCG
  10. IBUPROFEN [Concomitant]
  11. MIXTARD HUMAN 70/30 [Concomitant]
  12. NYSTATIN [Concomitant]
  13. OMEPRAZOLE [Concomitant]
  14. PARACETAMOL [Concomitant]
  15. PAROXETINE HCL [Concomitant]
  16. QUETIAPINE [Concomitant]
     Dosage: DAILY DOSE:25MG
  17. RAMIPRIL [Concomitant]
  18. TAMOXIFEN CITRATE [Concomitant]

REACTIONS (2)
  - CONDITION AGGRAVATED [None]
  - LIVER FUNCTION TEST ABNORMAL [None]
